FAERS Safety Report 4377406-2 (Version None)
Quarter: 2004Q2

REPORT INFORMATION
  Report Type: 
  Country: None (occurrence: None)
  Receive Date: 20040609
  Receipt Date: 20040429
  Transmission Date: 20050107
  Serious: No
  Sender: FDA-Public Use
  Company Number: 2004211853US

PATIENT
  Age: 45 Year
  Sex: Male

DRUGS (1)
  1. BEXTRA [Suspect]

REACTIONS (1)
  - URINE AMPHETAMINE POSITIVE [None]
